FAERS Safety Report 4716358-X (Version None)
Quarter: 2005Q3

REPORT INFORMATION
  Report Type: 
  Country: None (occurrence: None)
  Receive Date: 20050712
  Receipt Date: 20050509
  Transmission Date: 20060218
  Serious: Yes (Hospitalization)
  Sender: FDA-Public Use
  Company Number: PHEH2005US02176

PATIENT
  Age: 53 Year
  Sex: Male

DRUGS (5)
  1. GLEEVEC [Suspect]
     Indication: CHRONIC MYELOID LEUKAEMIA
     Dosage: 400 MG QD ORAL
     Route: 048
     Dates: start: 20040801, end: 20050201
  2. GLEEVEC [Suspect]
     Indication: CHRONIC MYELOID LEUKAEMIA
     Dosage: 400 MG QD ORAL
     Route: 048
     Dates: start: 20050201
  3. LISINOPRIL [Concomitant]
  4. METOPROLOL [Concomitant]
  5. MS CONTIN [Concomitant]

REACTIONS (4)
  - CONDITION AGGRAVATED [None]
  - FALL [None]
  - MUSCULOSKELETAL PAIN [None]
  - NEUROPATHY [None]
